FAERS Safety Report 5253479-X (Version None)
Quarter: 2007Q1

REPORT INFORMATION
  Report Type: 
  Country: None (occurrence: None)
  Receive Date: 20070301
  Receipt Date: 20070223
  Transmission Date: 20070707
  Serious: Yes (Hospitalization)
  Sender: FDA-Public Use
  Company Number: CO-BOEHRINGER INGELHEIM PHARMACEUTICALS, INC.-2007-BP-02596CL

PATIENT
  Age: 63 Year
  Sex: Male

DRUGS (1)
  1. SECOTEX CAPSULES [Suspect]
     Indication: BENIGN PROSTATIC HYPERPLASIA
     Route: 048
     Dates: start: 20060117, end: 20060225

REACTIONS (3)
  - DRUG INEFFECTIVE [None]
  - PROSTATECTOMY [None]
  - URINARY RETENTION [None]
